FAERS Safety Report 5535991-9 (Version None)
Quarter: 2007Q4

REPORT INFORMATION
  Report Type: 
  Country: None (occurrence: None)
  Receive Date: 20071206
  Receipt Date: 20071128
  Transmission Date: 20080405
  Serious: Yes (Other)
  Sender: FDA-Public Use
  Company Number: AU-ABBOTT-07P-008-0426370-00

PATIENT
  Sex: Female

DRUGS (1)
  1. HUMIRA [Suspect]
     Indication: CROHN'S DISEASE
     Route: 058

REACTIONS (5)
  - ABDOMINAL DISTENSION [None]
  - COLITIS ULCERATIVE [None]
  - GASTROENTERITIS NORWALK VIRUS [None]
  - HAEMORRHAGE [None]
  - PROCTITIS [None]
